FAERS Safety Report 20317213 (Version 2)
Quarter: 2022Q1

REPORT INFORMATION
  Report Type: Spontaneous
  Country: US (occurrence: US)
  Receive Date: 20220110
  Receipt Date: 20220210
  Transmission Date: 20220423
  Serious: No
  Sender: FDA-Public Use
  Company Number: US-PFIZER INC-202101843161

PATIENT
  Age: 37 Year
  Sex: Female

DRUGS (1)
  1. DEPO-PROVERA [Suspect]
     Active Substance: MEDROXYPROGESTERONE ACETATE
     Indication: Contraception
     Dosage: UNK,0.65ML PREFILLED SYRINGE

REACTIONS (3)
  - Poor quality device used [Unknown]
  - Device occlusion [Unknown]
  - Product administration error [Unknown]

NARRATIVE: CASE EVENT DATE: 20211221
